FAERS Safety Report 6378361-6 (Version None)
Quarter: 2009Q3

REPORT INFORMATION
  Report Type: 
  Country: None (occurrence: None)
  Receive Date: 20090925
  Receipt Date: 20090706
  Transmission Date: 20100115
  Serious: No
  Sender: FDA-Public Use
  Company Number: US-ASTRAZENECA-2007UW05489

PATIENT
  Age: 595 Month
  Sex: Female
  Weight: 65.8 kg

DRUGS (16)
  1. SEROQUEL [Suspect]
     Indication: DEPRESSION
     Dosage: 150-300 MG QD
     Route: 048
     Dates: start: 20020506, end: 20050120
  2. SEROQUEL [Suspect]
     Route: 048
     Dates: start: 20020506
  3. SEROQUEL [Suspect]
     Dosage: 150-300 MG
     Route: 048
     Dates: start: 20020612
  4. SEROQUEL [Suspect]
     Route: 048
     Dates: start: 20021129, end: 20050120
  5. PREMARIN [Concomitant]
  6. DIGOXIN [Concomitant]
  7. ATENOLOL [Concomitant]
  8. CELEXA [Concomitant]
  9. CEPHALEXIN [Concomitant]
  10. TRAMADOL HCL [Concomitant]
  11. ETODOLAC [Concomitant]
  12. DIAZEPAM [Concomitant]
  13. CARISOPRODOL [Concomitant]
  14. HYDROCODONE BITARTRATE AND ACETAMINOPHEN [Concomitant]
     Dosage: 7.5 MG / 650 MG
  15. RISPERDAL [Concomitant]
  16. ZYPREXA [Concomitant]
     Dates: start: 20001201, end: 20010501

REACTIONS (2)
  - DIABETES MELLITUS [None]
  - OBESITY [None]
